FAERS Safety Report 15108483 (Version 1)
Quarter: 2018Q3

REPORT INFORMATION
  Report Type: Spontaneous
  Country: US (occurrence: US)
  Receive Date: 20180705
  Receipt Date: 20180705
  Transmission Date: 20181010
  Serious: No
  Sender: FDA-Public Use
  Company Number: US-TEVA-2018-US-917966

PATIENT
  Age: 83 Year
  Sex: Male

DRUGS (1)
  1. CLONIDINE. [Suspect]
     Active Substance: CLONIDINE
     Dosage: .3 MILLIGRAM DAILY;
     Route: 062

REACTIONS (2)
  - Product adhesion issue [Unknown]
  - Blood pressure fluctuation [Unknown]

NARRATIVE: CASE EVENT DATE: 201804
